FAERS Safety Report 20968572 (Version 1)
Quarter: 2022Q2

REPORT INFORMATION
  Report Type: Spontaneous
  Country: JP (occurrence: JP)
  Receive Date: 20220616
  Receipt Date: 20220616
  Transmission Date: 20220721
  Serious: Yes (Death, Other)
  Sender: FDA-Public Use
  Company Number: JP-PFIZER INC-202200678062

PATIENT
  Age: 65 Year
  Sex: Male

DRUGS (9)
  1. DOXORUBICIN HYDROCHLORIDE [Suspect]
     Active Substance: DOXORUBICIN HYDROCHLORIDE
     Indication: Adult T-cell lymphoma/leukaemia
     Dosage: CYCLIC, TWO CYCLES OF CHEMOTHERAPY
  2. VINCRISTINE [Suspect]
     Active Substance: VINCRISTINE
     Indication: Adult T-cell lymphoma/leukaemia
     Dosage: UNK, CYCLIC, TWO CYCLES OF CHEMOTHERAPY
  3. CYCLOPHOSPHAMIDE [Suspect]
     Active Substance: CYCLOPHOSPHAMIDE
     Indication: Adult T-cell lymphoma/leukaemia
     Dosage: UNK, CYCLIC, TWO CYCLES OF CHEMOTHERAPY
  4. PREDNISONE [Suspect]
     Active Substance: PREDNISONE
     Indication: Adult T-cell lymphoma/leukaemia
     Dosage: UNK, CYCLIC, TWO CYCLES OF CHEMOTHERAPY
  5. RANIMUSTINE [Suspect]
     Active Substance: RANIMUSTINE
     Indication: Adult T-cell lymphoma/leukaemia
     Dosage: UNK, CYCLIC, TWO CYCLES OF CHEMOTHERAPY
  6. VINDESINE [Suspect]
     Active Substance: VINDESINE
     Indication: Adult T-cell lymphoma/leukaemia
     Dosage: UNK, CYCLIC, TWO CYCLES OF CHEMOTHERAPY
  7. ETOPOSIDE [Suspect]
     Active Substance: ETOPOSIDE
     Indication: Adult T-cell lymphoma/leukaemia
     Dosage: UNK, CYCLIC, TWO CYCLES OF CHEMOTHERAPY
  8. CARBOPLATIN [Suspect]
     Active Substance: CARBOPLATIN
     Indication: Adult T-cell lymphoma/leukaemia
     Dosage: UNK, CYCLIC, TWO CYCLES OF CHEMOTHERAPY
  9. MOGAMULIZUMAB [Suspect]
     Active Substance: MOGAMULIZUMAB
     Indication: Adult T-cell lymphoma/leukaemia
     Dosage: UNK, CYCLIC, TWO CYCLES OF CHEMOTHERAPY

REACTIONS (3)
  - Neoplasm progression [Fatal]
  - Dyspnoea exertional [Fatal]
  - Palpitations [Fatal]
